FAERS Safety Report 11778616 (Version 1)
Quarter: 2015Q4

REPORT INFORMATION
  Report Type: Report from Study
  Country: US (occurrence: US)
  Receive Date: 20151125
  Receipt Date: 20151125
  Transmission Date: 20160304
  Serious: Yes (Hospitalization, Other)
  Sender: FDA-Public Use
  Company Number: US-JNJFOC-20150905967

PATIENT
  Age: 54 Year
  Sex: Female

DRUGS (5)
  1. RISPERDAL CONSTA [Suspect]
     Active Substance: RISPERIDONE
     Indication: SCHIZOAFFECTIVE DISORDER
     Route: 030
  2. RISPERDAL CONSTA [Suspect]
     Active Substance: RISPERIDONE
     Indication: SCHIZOAFFECTIVE DISORDER
     Route: 030
     Dates: start: 20150519
  3. RISPERIDONE. [Suspect]
     Active Substance: RISPERIDONE
     Indication: AGITATION
     Route: 065
     Dates: start: 20150811, end: 20150911
  4. BENZTROPINE [Concomitant]
     Active Substance: BENZTROPINE
     Indication: MUSCLE CONTRACTURE
     Dosage: 1MG-2MG AS NECESSARY
     Route: 065
     Dates: start: 20151108, end: 20151109
  5. BENZTROPINE [Concomitant]
     Active Substance: BENZTROPINE
     Indication: MUSCLE TIGHTNESS
     Dosage: 1MG-2MG AS NECESSARY
     Route: 065
     Dates: start: 20151108, end: 20151109

REACTIONS (3)
  - Urinary tract infection [Unknown]
  - Atrial fibrillation [Recovered/Resolved]
  - Deep vein thrombosis [Unknown]

NARRATIVE: CASE EVENT DATE: 201508
